FAERS Safety Report 9433551 (Version 1)
Quarter: 2013Q3

REPORT INFORMATION
  Report Type: Spontaneous
  Country: CA (occurrence: CA)
  Receive Date: 20130731
  Receipt Date: 20130731
  Transmission Date: 20140515
  Serious: Yes (Life-Threatening, Hospitalization)
  Sender: FDA-Public Use
  Company Number: CA-EISAI INC-A001-002-004851

PATIENT
  Sex: Female
  Weight: 50 kg

DRUGS (8)
  1. ARICEPT (DONEPEZIL) [Suspect]
     Indication: PRODUCT USED FOR UNKNOWN INDICATION
     Route: 048
     Dates: start: 20000109
  2. CLARITIN [Suspect]
     Indication: PRODUCT USED FOR UNKNOWN INDICATION
     Route: 048
     Dates: end: 20000122
  3. CLARITIN [Suspect]
     Dosage: 3 TABLETS IN 12 HOURS
     Route: 048
     Dates: start: 20000123, end: 20000123
  4. BUSPAR [Concomitant]
     Dosage: 10 MG TWICE A DAY
     Route: 048
  5. COUMADIN [Concomitant]
     Route: 048
     Dates: start: 199804
  6. ISOPTIN SR [Concomitant]
     Route: 048
     Dates: start: 199804
  7. RESTORIL [Concomitant]
     Route: 048
  8. TENORMIN [Concomitant]
     Route: 048
     Dates: start: 199804

REACTIONS (3)
  - Electrocardiogram QT prolonged [Recovered/Resolved]
  - Atrial flutter [Recovered/Resolved]
  - Syncope [Recovered/Resolved]
